FAERS Safety Report 7966150-8 (Version None)
Quarter: 2011Q4

REPORT INFORMATION
  Report Type: 
  Country: None (occurrence: None)
  Receive Date: 20111208
  Receipt Date: 20111127
  Transmission Date: 20120403
  Serious: Yes (Other)
  Sender: FDA-Public Use
  Company Number: GB-BAYER-2011-115803

PATIENT
  Sex: Female

DRUGS (1)
  1. CLOTRIMAZOLE [Suspect]
     Dosage: 2X200 MG IN TWO DAYS
     Dates: start: 20111124, end: 20111125

REACTIONS (2)
  - GENITAL HAEMORRHAGE [None]
  - ABDOMINAL PAIN LOWER [None]
